FAERS Safety Report 9776617 (Version 2)
Quarter: 2013Q4

REPORT INFORMATION
  Report Type: Report from Study
  Country: NL (occurrence: NL)
  Receive Date: 20131220
  Receipt Date: 20131220
  Transmission Date: 20140711
  Serious: Yes (Life-Threatening)
  Sender: FDA-Public Use
  Company Number: NL-ABBVIE-12P-114-0894830-00

PATIENT
  Age: 89 Year
  Sex: Male
  Weight: 73 kg

DRUGS (6)
  1. LUPRON DEPOT [Suspect]
     Indication: PROSTATE CANCER
     Route: 058
     Dates: start: 20101202
  2. ACENOCOUMAROL [Concomitant]
     Indication: ANTICOAGULANT THERAPY
     Dosage: ACCORDING TO SCHEDULE
     Route: 048
  3. BICALUTAMIDE [Concomitant]
     Indication: PROSTATE CANCER
     Route: 047
  4. ISOSORBIDE MONONITRATE [Concomitant]
     Indication: ANGINA PECTORIS
     Dosage: MGA
     Route: 048
  5. SIMVASTATIN [Concomitant]
     Indication: BLOOD CHOLESTEROL INCREASED
     Dosage: PCH FC TABLET
     Route: 048
  6. TAMSULOSIN [Concomitant]
     Indication: PROSTATE CANCER
     Route: 048

REACTIONS (3)
  - Terminal state [Unknown]
  - Infection [Recovered/Resolved]
  - Fall [Recovered/Resolved]
